FAERS Safety Report 11971985 (Version 2)
Quarter: 2016Q1

REPORT INFORMATION
  Report Type: Spontaneous
  Country: US (occurrence: US)
  Receive Date: 20160128
  Receipt Date: 20160304
  Transmission Date: 20160526
  Serious: No
  Sender: FDA-Public Use
  Company Number: US-PFIZER INC-2016022210

PATIENT
  Sex: Female

DRUGS (10)
  1. AMLODIPINE BESILATE [Suspect]
     Active Substance: AMLODIPINE BESYLATE
     Dosage: UNK
  2. ELAVIL [Suspect]
     Active Substance: AMITRIPTYLINE HYDROCHLORIDE
     Dosage: UNK
  3. WELLBUTRIN [Suspect]
     Active Substance: BUPROPION HYDROCHLORIDE
     Dosage: UNK
  4. DESIPRAMINE HCL [Suspect]
     Active Substance: DESIPRAMINE HYDROCHLORIDE
     Dosage: UNK
  5. GABAPENTIN. [Suspect]
     Active Substance: GABAPENTIN
     Dosage: UNK
  6. VENLAFAXINE HCL [Suspect]
     Active Substance: VENLAFAXINE HYDROCHLORIDE
     Dosage: UNK
  7. OXYCODONE [Suspect]
     Active Substance: OXYCODONE
     Dosage: UNK
  8. CARISOPRODOL. [Suspect]
     Active Substance: CARISOPRODOL
     Dosage: UNK
  9. PROCARDIA [Suspect]
     Active Substance: NIFEDIPINE
     Dosage: UNK
  10. LORAZEPAM. [Suspect]
     Active Substance: LORAZEPAM
     Dosage: UNK

REACTIONS (1)
  - Drug hypersensitivity [Not Recovered/Not Resolved]
